FAERS Safety Report 14677931 (Version 1)
Quarter: 2018Q1

REPORT INFORMATION
  Report Type: Spontaneous
  Country: FR (occurrence: FR)
  Receive Date: 20180326
  Receipt Date: 20180326
  Transmission Date: 20180509
  Serious: Yes (Other)
  Sender: FDA-Public Use
  Company Number: FR-MERCK KGAA-2044477

PATIENT
  Age: 54 Year
  Sex: Female

DRUGS (1)
  1. NOVOTHYROX [Suspect]
     Active Substance: LEVOTHYROXINE SODIUM
     Indication: HYPOTHYROIDISM

REACTIONS (31)
  - Suicidal ideation [Recovering/Resolving]
  - Depressed mood [Recovering/Resolving]
  - Hypoaesthesia [Recovering/Resolving]
  - Neck pain [Recovering/Resolving]
  - Impatience [Recovering/Resolving]
  - Affect lability [Recovering/Resolving]
  - Insomnia [Recovering/Resolving]
  - Affective disorder [Recovering/Resolving]
  - Asthenia [Recovering/Resolving]
  - Thyroid function test abnormal [Recovering/Resolving]
  - Arthralgia [Recovering/Resolving]
  - Fatigue [Recovering/Resolving]
  - Myalgia [Recovering/Resolving]
  - Hot flush [Recovering/Resolving]
  - Anxiety [Recovering/Resolving]
  - Back pain [Recovering/Resolving]
  - Disturbance in attention [Recovering/Resolving]
  - Hyperhidrosis [Recovering/Resolving]
  - Mental impairment [Recovering/Resolving]
  - Hypotension [Recovering/Resolving]
  - Social problem [Recovering/Resolving]
  - Temperature intolerance [Recovering/Resolving]
  - Sleep disorder [Recovering/Resolving]
  - Weight increased [Recovering/Resolving]
  - Feeling abnormal [Recovering/Resolving]
  - Major depression [Recovering/Resolving]
  - Apathy [Recovering/Resolving]
  - Psychomotor hyperactivity [Recovering/Resolving]
  - Loss of libido [Recovering/Resolving]
  - Loss of personal independence in daily activities [Recovering/Resolving]
  - Nervousness [Recovering/Resolving]

NARRATIVE: CASE EVENT DATE: 2017
